FAERS Safety Report 7141768-3 (Version None)
Quarter: 2010Q4

REPORT INFORMATION
  Report Type: 
  Country: None (occurrence: None)
  Receive Date: 20101207
  Receipt Date: 20101129
  Transmission Date: 20110411
  Serious: Yes (Hospitalization)
  Sender: FDA-Public Use
  Company Number: US-ASTRAZENECA-2010SE56632

PATIENT
  Age: 27 Year
  Sex: Female

DRUGS (10)
  1. SEROQUEL [Suspect]
     Indication: BIPOLAR DISORDER
     Route: 048
     Dates: start: 20100101, end: 20100201
  2. SEROQUEL [Suspect]
     Route: 048
     Dates: start: 20100201
  3. SEROQUEL [Suspect]
     Route: 048
  4. SEROQUEL [Suspect]
     Route: 048
     Dates: end: 20101001
  5. IBUPROFEN [Concomitant]
     Indication: PAIN IN EXTREMITY
  6. IBUPROFEN [Concomitant]
     Indication: BACK PAIN
  7. PAXAL [Concomitant]
  8. XANAX [Concomitant]
  9. COUMADIN [Concomitant]
  10. ABILIFY [Concomitant]

REACTIONS (5)
  - DEEP VEIN THROMBOSIS [None]
  - FATIGUE [None]
  - HYPOTENSION [None]
  - PULMONARY EMBOLISM [None]
  - WEIGHT INCREASED [None]
